FAERS Safety Report 16281969 (Version 2)
Quarter: 2019Q3

REPORT INFORMATION
  Report Type: Other
  Country: CA (occurrence: CA)
  Receive Date: 20190507
  Receipt Date: 20190710
  Transmission Date: 20191004
  Serious: Yes (Other)
  Sender: FDA-Public Use
  Company Number: CA-APOTEX-2019AP013055

PATIENT
  Age: 49 Year
  Sex: Female

DRUGS (12)
  1. CAPECITABINE. [Suspect]
     Active Substance: CAPECITABINE
     Indication: BREAST CANCER
     Dosage: UNK
     Route: 065
  2. LETROZOLE. [Suspect]
     Active Substance: LETROZOLE
     Indication: BREAST CANCER
     Dosage: UNK
     Route: 065
  3. LETROZOLE. [Suspect]
     Active Substance: LETROZOLE
     Dosage: UNK
     Route: 065
  4. LETROZOLE. [Suspect]
     Active Substance: LETROZOLE
     Dosage: UNK
     Route: 065
  5. XELODA [Suspect]
     Active Substance: CAPECITABINE
     Indication: BREAST CANCER
     Dosage: UNK
     Route: 065
  6. CLODRONATE DISODIUM [Suspect]
     Active Substance: CLODRONATE DISODIUM
     Indication: BREAST CANCER
     Dosage: UNK
     Route: 065
  7. CLODRONIC ACID [Suspect]
     Active Substance: CLODRONIC ACID
     Indication: BREAST CANCER
     Dosage: UNK
     Route: 065
  8. ERIBULIN MESYLATE [Suspect]
     Active Substance: ERIBULIN MESYLATE
     Indication: BREAST CANCER
     Dosage: UNK
     Route: 065
  9. PALBOCICLIB [Suspect]
     Active Substance: PALBOCICLIB
     Indication: BREAST CANCER
     Route: 065
  10. TAMOXIFEN [Suspect]
     Active Substance: TAMOXIFEN
     Indication: BREAST CANCER
     Dosage: UNK
     Route: 065
  11. FULVESTRANT. [Suspect]
     Active Substance: FULVESTRANT
     Indication: BREAST CANCER
     Route: 005
  12. PACLITAXEL. [Suspect]
     Active Substance: PACLITAXEL
     Indication: BREAST CANCER
     Dosage: UNK
     Route: 042

REACTIONS (13)
  - Platelet count decreased [Recovering/Resolving]
  - Immunosuppression [Recovering/Resolving]
  - Malignant neoplasm progression [Recovering/Resolving]
  - White blood cell count increased [Unknown]
  - Metastases to liver [Recovering/Resolving]
  - Meningoencephalitis herpetic [Recovering/Resolving]
  - Protein total increased [Recovering/Resolving]
  - Metastases to central nervous system [Recovering/Resolving]
  - Headache [Recovering/Resolving]
  - Asthenia [Recovering/Resolving]
  - Herpes simplex encephalitis [Unknown]
  - Breast cancer [Recovering/Resolving]
  - Metastases to eye [Recovering/Resolving]
